FAERS Safety Report 7003662-8 (Version None)
Quarter: 2010Q3

REPORT INFORMATION
  Report Type: 
  Country: None (occurrence: None)
  Receive Date: 20100920
  Receipt Date: 20090415
  Transmission Date: 20110219
  Serious: No
  Sender: FDA-Public Use
  Company Number: US-WYE-H08979809

PATIENT
  Sex: Female
  Weight: 81.27 kg

DRUGS (3)
  1. PROTONIX [Suspect]
     Indication: GASTRIC ULCER
     Route: 048
     Dates: start: 20080101, end: 20090321
  2. LIPITOR [Concomitant]
  3. SYNTHROID [Concomitant]

REACTIONS (5)
  - GLOSSODYNIA [None]
  - HYPERSENSITIVITY [None]
  - ORAL LICHEN PLANUS [None]
  - RASH ERYTHEMATOUS [None]
  - RASH PRURITIC [None]
